FAERS Safety Report 6483287-3 (Version None)
Quarter: 2009Q4

REPORT INFORMATION
  Report Type: 
  Country: None (occurrence: None)
  Receive Date: 20091209
  Receipt Date: 20091130
  Transmission Date: 20100525
  Serious: Yes (Other)
  Sender: FDA-Public Use
  Company Number: CA-ALEXION-A200900930

PATIENT
  Sex: Male

DRUGS (11)
  1. SOLIRIS [Suspect]
     Indication: PAROXYSMAL NOCTURNAL HAEMOGLOBINURIA
     Dosage: 600 MG, QW
     Route: 042
     Dates: start: 20091106
  2. PREDNISONE [Concomitant]
     Indication: PAROXYSMAL NOCTURNAL HAEMOGLOBINURIA
     Dosage: UNK
     Route: 048
  3. RANITIDINE [Concomitant]
     Dosage: UNK
     Route: 048
  4. ADALAT [Concomitant]
     Indication: BLOOD PRESSURE
     Dosage: UNK
     Route: 048
  5. FUROSEMIDE [Concomitant]
     Dosage: UNK
     Route: 048
  6. FOSAMAX [Concomitant]
     Dosage: 1QW
     Route: 048
  7. WARFARIN SODIUM [Concomitant]
     Dosage: UNK
     Route: 048
  8. IRON [Concomitant]
     Dosage: UNK
     Route: 048
  9. CALCIUM [Concomitant]
     Dosage: UNK
     Route: 048
  10. VITAMIN A [Concomitant]
     Dosage: UNK
     Route: 048
  11. FOLIC ACID [Concomitant]
     Dosage: UNK
     Route: 048

REACTIONS (3)
  - HEADACHE [None]
  - RESTLESS LEGS SYNDROME [None]
  - RETINAL DETACHMENT [None]
